FAERS Safety Report 7562602-3 (Version None)
Quarter: 2011Q2

REPORT INFORMATION
  Report Type: 
  Country: None (occurrence: None)
  Receive Date: 20110622
  Receipt Date: 20110616
  Transmission Date: 20111010
  Serious: Yes (Hospitalization)
  Sender: FDA-Public Use
  Company Number: IE-US-EMD SERONO, INC.-7065588

PATIENT
  Sex: Female

DRUGS (2)
  1. REBIF [Suspect]
     Indication: RELAPSING-REMITTING MULTIPLE SCLEROSIS
     Route: 058
     Dates: start: 19980801, end: 20100912
  2. REBIF [Suspect]
     Route: 058
     Dates: start: 20100912

REACTIONS (9)
  - CHILLS [None]
  - INJECTION SITE HAEMATOMA [None]
  - WRONG TECHNIQUE IN DRUG USAGE PROCESS [None]
  - DYSPHAGIA [None]
  - MUSCLE ATROPHY [None]
  - MUSCLE SPASMS [None]
  - INJECTION SITE INJURY [None]
  - HEMIPARESIS [None]
  - MUSCULOSKELETAL STIFFNESS [None]
